FAERS Safety Report 9466780 (Version 1)
Quarter: 2013Q3

REPORT INFORMATION
  Report Type: Spontaneous
  Country: US (occurrence: US)
  Receive Date: 20130820
  Receipt Date: 20130820
  Transmission Date: 20140515
  Serious: No
  Sender: FDA-Public Use
  Company Number: US-B.I. PHARMACEUTICALS,INC./RIDGEFIELD-2013-BI-24603BP

PATIENT
  Age: 80 Year
  Sex: Female

DRUGS (2)
  1. ZANTAC COOL MINT (TABLETS) [Suspect]
     Indication: DYSPEPSIA
     Route: 048
     Dates: start: 20130810, end: 20130811
  2. PEPTO BISMOL [Concomitant]
     Indication: DYSPEPSIA
     Route: 048
     Dates: start: 20130812

REACTIONS (1)
  - Faeces discoloured [Recovered/Resolved]
